FAERS Safety Report 7221711-9 (Version None)
Quarter: 2011Q1

REPORT INFORMATION
  Report Type: 
  Country: None (occurrence: None)
  Receive Date: 20110112
  Receipt Date: 20110105
  Transmission Date: 20110831
  Serious: Yes (Other)
  Sender: FDA-Public Use
  Company Number: CA-PFIZER INC-2010001638

PATIENT
  Age: 70 Year
  Sex: Male

DRUGS (4)
  1. LIPITOR [Suspect]
     Dosage: UNK
  2. THYROXIN [Interacting]
     Indication: BLOOD THYROID STIMULATING HORMONE INCREASED
     Dosage: 0.1 MG, UNK
     Dates: start: 20091001
  3. TECTA [Interacting]
     Indication: DYSPHONIA
     Dosage: 40 MG, 1X/DAY
     Dates: start: 20091129
  4. TECTA [Interacting]
     Indication: GASTROOESOPHAGEAL REFLUX DISEASE

REACTIONS (7)
  - DRUG INTERACTION [None]
  - MUSCLE ATROPHY [None]
  - TREMOR [None]
  - SYNCOPE [None]
  - DIZZINESS [None]
  - MUSCULAR WEAKNESS [None]
  - HYPOTENSION [None]
